FAERS Safety Report 4606118-2 (Version None)
Quarter: 2005Q1

REPORT INFORMATION
  Report Type: 
  Country: None (occurrence: None)
  Receive Date: 20050309
  Receipt Date: 20050225
  Transmission Date: 20050727
  Serious: Yes (Hospitalization, Other)
  Sender: FDA-Public Use
  Company Number: 2005024150

PATIENT
  Age: 48 Year
  Sex: Female
  Weight: 63.5036 kg

DRUGS (5)
  1. NEURONTIN [Suspect]
     Indication: NERVE INJURY
     Dosage: 2100 MG
     Dates: start: 20010101, end: 20010801
  2. TOPIRAMATE [Suspect]
     Indication: NERVE INJURY
     Dosage: 100 MG (50 MG, 2 IN 1 D), ORAL
     Route: 048
     Dates: start: 20040514, end: 20040702
  3. ZOLPIDEM TARTRATE [Concomitant]
  4. TRAMADOL HCL [Concomitant]
  5. PROPACET (DETROPROPOXYPHENE NAPSILATE, PARACETAMOL) [Concomitant]

REACTIONS (15)
  - APHASIA [None]
  - ASTHENIA [None]
  - CONTUSION [None]
  - CRYING [None]
  - FEELING ABNORMAL [None]
  - HEADACHE [None]
  - HEMIPARESIS [None]
  - LOSS OF CONSCIOUSNESS [None]
  - MYALGIA [None]
  - NEUROPATHY [None]
  - NEUROPATHY PERIPHERAL [None]
  - PARAESTHESIA [None]
  - SPEECH DISORDER [None]
  - SYSTEMIC LUPUS ERYTHEMATOSUS [None]
  - TREMOR [None]
